FAERS Safety Report 9366524 (Version 1)
Quarter: 2013Q2

REPORT INFORMATION
  Report Type: Spontaneous
  Country: BR (occurrence: BR)
  Receive Date: 20130625
  Receipt Date: 20130625
  Transmission Date: 20140414
  Serious: Yes (Other)
  Sender: FDA-Public Use
  Company Number: BR-BAYER-2013-006618

PATIENT
  Age: 34 Day
  Sex: Female
  Weight: 3.63 kg

DRUGS (1)
  1. YAZ (24) [Suspect]
     Route: 064

REACTIONS (1)
  - Joint dislocation [None]
